FAERS Safety Report 11968210 (Version 1)
Quarter: 2016Q1

REPORT INFORMATION
  Report Type: Spontaneous
  Country: US (occurrence: US)
  Receive Date: 20160127
  Receipt Date: 20160127
  Transmission Date: 20160526
  Serious: No
  Sender: FDA-Public Use
  Company Number: US-009507513-1601USA009448

PATIENT

DRUGS (1)
  1. TEMODAR [Suspect]
     Active Substance: TEMOZOLOMIDE
     Dosage: TOOK A TOTAL OF ^SIX 100 MG CAPSULES AND SIX 20 MG CAPSULES^ EARLIER THAN INTENDED
     Route: 048

REACTIONS (2)
  - Inappropriate schedule of drug administration [Unknown]
  - No adverse event [Unknown]
